FAERS Safety Report 21094785 (Version 2)
Quarter: 2022Q3

REPORT INFORMATION
  Report Type: Spontaneous
  Country: ES (occurrence: ES)
  Receive Date: 20220718
  Receipt Date: 20220728
  Transmission Date: 20221026
  Serious: Yes (Death, Other)
  Sender: FDA-Public Use
  Company Number: ES-GLAXOSMITHKLINE-ES2022EME097339

PATIENT

DRUGS (1)
  1. BLENREP [Suspect]
     Active Substance: BELANTAMAB MAFODOTIN-BLMF
     Indication: Product used for unknown indication
     Dosage: UNK, 2.5 MG/KG
     Dates: start: 20220609

REACTIONS (10)
  - Death [Fatal]
  - Delirium [Unknown]
  - Chronic kidney disease [Unknown]
  - Hepatosplenomegaly [Unknown]
  - Hyperamylasaemia [Unknown]
  - Diarrhoea [Unknown]
  - Pyrexia [Unknown]
  - Abdominal pain [Unknown]
  - Blood lactate dehydrogenase increased [Unknown]
  - Peripancreatic fluid collection [Unknown]

NARRATIVE: CASE EVENT DATE: 20220623
